FAERS Safety Report 10195288 (Version 1)
Quarter: 2014Q2

REPORT INFORMATION
  Report Type: Spontaneous
  Country: DE (occurrence: DE)
  Receive Date: 20140526
  Receipt Date: 20140526
  Transmission Date: 20141212
  Serious: Yes (Other)
  Sender: FDA-Public Use
  Company Number: DE-JNJFOC-20140509404

PATIENT
  Age: 38 Year
  Sex: Female

DRUGS (1)
  1. XEPLION [Suspect]
     Indication: SCHIZOPHRENIA, CATATONIC TYPE
     Route: 030
     Dates: start: 20131101

REACTIONS (5)
  - Nodule [Recovered/Resolved]
  - Haematoma [Recovered/Resolved]
  - Application site erythema [Recovered/Resolved]
  - Application site swelling [Recovered/Resolved]
  - Pain [Recovered/Resolved]
